FAERS Safety Report 18282289 (Version 1)
Quarter: 2020Q3

REPORT INFORMATION
  Report Type: Spontaneous
  Country: US (occurrence: US)
  Receive Date: 20200917
  Receipt Date: 20200917
  Transmission Date: 20201103
  Serious: Yes (Hospitalization)
  Sender: FDA-Public Use
  Company Number: None

PATIENT
  Age: 69 Year
  Sex: Female

DRUGS (7)
  1. TRIAM/HCTZ [Concomitant]
     Active Substance: HYDROCHLOROTHIAZIDE\TRIAMTERENE
  2. LORAZEPAM. [Concomitant]
     Active Substance: LORAZEPAM
  3. VENLAFAXINE [Concomitant]
     Active Substance: VENLAFAXINE HYDROCHLORIDE
  4. SPIRONOLACT [Concomitant]
     Active Substance: SPIRONOLACTONE
  5. ACYCLOVIR. [Concomitant]
     Active Substance: ACYCLOVIR
  6. CYCLOBENZAPR [Concomitant]
     Active Substance: CYCLOBENZAPRINE
  7. HUMIRA [Suspect]
     Active Substance: ADALIMUMAB
     Indication: RHEUMATOID ARTHRITIS
     Route: 058
     Dates: start: 20170621

REACTIONS (2)
  - Therapy interrupted [None]
  - Bladder cancer [None]

NARRATIVE: CASE EVENT DATE: 20200915
